FAERS Safety Report 8229503-9 (Version None)
Quarter: 2012Q1

REPORT INFORMATION
  Report Type: 
  Country: None (occurrence: None)
  Receive Date: 20120322
  Receipt Date: 20120307
  Transmission Date: 20120608
  Serious: Yes (Hospitalization)
  Sender: FDA-Public Use
  Company Number: US-ACTELION-A-US2012-60808

PATIENT

DRUGS (4)
  1. COUMADIN [Concomitant]
  2. TRACLEER [Suspect]
     Indication: PULMONARY ARTERIAL HYPERTENSION
     Dosage: UNK
     Route: 048
     Dates: start: 20110815
  3. DIURETICS [Concomitant]
  4. TYVASO [Suspect]
     Indication: PULMONARY ARTERIAL HYPERTENSION
     Dosage: 18 MCG, QID
     Route: 055
     Dates: start: 20111121

REACTIONS (11)
  - UPPER GASTROINTESTINAL HAEMORRHAGE [None]
  - VOMITING [None]
  - OESOPHAGITIS [None]
  - DYSPEPSIA [None]
  - LIVER FUNCTION TEST ABNORMAL [None]
  - NAUSEA [None]
  - INTERNATIONAL NORMALISED RATIO INCREASED [None]
  - EROSIVE DUODENITIS [None]
  - HAEMATEMESIS [None]
  - CHEST PAIN [None]
  - ABDOMINAL PAIN UPPER [None]
